FAERS Safety Report 25968186 (Version 1)
Quarter: 2025Q4

REPORT INFORMATION
  Report Type: Spontaneous
  Country: EU (occurrence: EU)
  Receive Date: 20251028
  Receipt Date: 20251028
  Transmission Date: 20260118
  Serious: Yes (Life-Threatening, Hospitalization, Other)
  Sender: AMGEN
  Company Number: EU-AMGEN-BGRSP2025209101

PATIENT
  Age: 4 Year
  Sex: Male

DRUGS (10)
  1. BLINCYTO [Suspect]
     Active Substance: BLINATUMOMAB
     Indication: Acute lymphocytic leukaemia
     Dosage: UNK
     Route: 065
     Dates: start: 20250520, end: 20250618
  2. BLINCYTO [Suspect]
     Active Substance: BLINATUMOMAB
     Dosage: UNK
     Route: 065
     Dates: start: 20250701, end: 2025
  3. METHOTREXATE [Concomitant]
     Active Substance: METHOTREXATE
     Dosage: UNK, DAY 1
     Route: 029
  4. METHOTREXATE [Concomitant]
     Active Substance: METHOTREXATE
     Dosage: UNK, DAY 15
     Route: 029
  5. METHOTREXATE [Concomitant]
     Active Substance: METHOTREXATE
     Dosage: UNK, DAY 28
     Route: 029
  6. ITRACONAZOLE [Concomitant]
     Active Substance: ITRACONAZOLE
  7. AMBISOME [Concomitant]
     Active Substance: AMPHOTERICIN B
  8. VORICONAZOLE [Concomitant]
     Active Substance: VORICONAZOLE
  9. METHYLPREDNISOLONE [Concomitant]
     Active Substance: METHYLPREDNISOLONE
  10. MIDAZOLAM [Concomitant]
     Active Substance: MIDAZOLAM

REACTIONS (17)
  - Respiratory arrest [Unknown]
  - Foreign body in mouth [Unknown]
  - Bronchial obstruction [Unknown]
  - Hallucination [Unknown]
  - Acinetobacter sepsis [Unknown]
  - Head injury [Unknown]
  - Loss of consciousness [Unknown]
  - Generalised tonic-clonic seizure [Unknown]
  - Febrile neutropenia [Unknown]
  - Inappropriate affect [Unknown]
  - Electrolyte imbalance [Unknown]
  - Injection site haemorrhage [Unknown]
  - Activated partial thromboplastin time prolonged [Unknown]
  - Prothrombin level decreased [Unknown]
  - Diarrhoea [Unknown]
  - Pyrexia [Unknown]
  - Hypertension [Unknown]

NARRATIVE: CASE EVENT DATE: 20250101
